FAERS Safety Report 12892825 (Version 2)
Quarter: 2016Q4

REPORT INFORMATION
  Report Type: Report from Study
  Country: CH (occurrence: CH)
  Receive Date: 20161028
  Receipt Date: 20161117
  Transmission Date: 20170207
  Serious: Yes (Other)
  Sender: FDA-Public Use
  Company Number: CH-PFIZER INC-2016420134

PATIENT
  Age: 45 Year
  Sex: Female
  Weight: 78 kg

DRUGS (2)
  1. PALBOCICLIB [Suspect]
     Active Substance: PALBOCICLIB
     Indication: BREAST CANCER METASTATIC
     Dosage: 125 MG, 1X/DAY, CYCLIC
     Route: 048
     Dates: start: 20160819, end: 20160831
  2. LETROZOLE. [Concomitant]
     Active Substance: LETROZOLE
     Dosage: 2.5 MG, 1X/DAY
     Route: 048

REACTIONS (3)
  - Deep vein thrombosis [Unknown]
  - Febrile neutropenia [Recovered/Resolved]
  - Epstein-Barr virus infection [Unknown]

NARRATIVE: CASE EVENT DATE: 2016
